FAERS Safety Report 14031089 (Version 1)
Quarter: 2017Q4

REPORT INFORMATION
  Report Type: Spontaneous
  Country: DE (occurrence: DE)
  Receive Date: 20171002
  Receipt Date: 20171002
  Transmission Date: 20180321
  Serious: Yes (Life-Threatening, Hospitalization, Other)
  Sender: FDA-Public Use
  Company Number: DE-JNJFOC-20170929286

PATIENT
  Age: 29 Year
  Sex: Male

DRUGS (6)
  1. SIMPONI [Suspect]
     Active Substance: GOLIMUMAB
     Indication: PRODUCT USED FOR UNKNOWN INDICATION
     Route: 058
     Dates: end: 201702
  2. FOLFIRINOX [Suspect]
     Active Substance: FLUOROURACIL\IRINOTECAN\LEUCOVORIN\OXALIPLATIN
     Indication: CHEMOTHERAPY
     Route: 042
     Dates: start: 201702, end: 20170302
  3. ALLOPURINOL. [Suspect]
     Active Substance: ALLOPURINOL
     Indication: PRODUCT USED FOR UNKNOWN INDICATION
     Route: 065
  4. CLAVERSAL [Suspect]
     Active Substance: MESALAMINE
     Indication: CHEMOTHERAPY
     Route: 065
  5. HUMIRA [Suspect]
     Active Substance: ADALIMUMAB
     Indication: INFLAMMATORY BOWEL DISEASE
     Route: 058
     Dates: start: 20130801, end: 20140701
  6. HUMIRA [Suspect]
     Active Substance: ADALIMUMAB
     Indication: COLITIS ULCERATIVE
     Route: 058
     Dates: start: 20130801, end: 20140701

REACTIONS (12)
  - Pancreatic duct stenosis [Unknown]
  - Pancreatic disorder [Unknown]
  - Colitis ulcerative [Unknown]
  - Pulmonary mass [Unknown]
  - Performance status decreased [Unknown]
  - Immunosuppression [Unknown]
  - Fatigue [Unknown]
  - Pancreatitis chronic [Unknown]
  - Diarrhoea [Unknown]
  - Pain [Recovered/Resolved]
  - Pancreatic carcinoma metastatic [Not Recovered/Not Resolved]
  - Autoimmune thyroiditis [Unknown]

NARRATIVE: CASE EVENT DATE: 201508
